FAERS Safety Report 23572483 (Version 1)
Quarter: 2024Q1

REPORT INFORMATION
  Report Type: Spontaneous
  Country: US (occurrence: None)
  Receive Date: 20240227
  Receipt Date: 20240227
  Transmission Date: 20240409
  Serious: Yes (Other)
  Sender: FDA-Public Use
  Company Number: None

PATIENT
  Age: 54 Year
  Sex: Male
  Weight: 89.1 kg

DRUGS (12)
  1. ACETAMINOPHEN\OXYCODONE HYDROCHLORIDE [Suspect]
     Active Substance: ACETAMINOPHEN\OXYCODONE HYDROCHLORIDE
     Indication: Procedural pain
     Dosage: OTHER STRENGTH : 5-325;?OTHER QUANTITY : 2 TABLET(S);?FREQUENCY : EVERY 4 HOURS;?
     Route: 048
     Dates: start: 20240122, end: 20240213
  2. ATORVASTATIN [Concomitant]
     Active Substance: ATORVASTATIN
  3. PROPENZOLE [Concomitant]
  4. PANTAPROPRIZOL [Concomitant]
  5. MELOXICAM [Concomitant]
     Active Substance: MELOXICAM
  6. REQUP [Concomitant]
  7. SILDENAFIL [Concomitant]
     Active Substance: SILDENAFIL
  8. METHOCARBAMOL [Concomitant]
     Active Substance: METHOCARBAMOL
  9. BUPROPION [Concomitant]
     Active Substance: BUPROPION
  10. LEXAPRO [Concomitant]
     Active Substance: ESCITALOPRAM OXALATE
  11. LYRICA [Concomitant]
     Active Substance: PREGABALIN
  12. DOXAZOSIN [Concomitant]
     Active Substance: DOXAZOSIN MESYLATE

REACTIONS (1)
  - Drug ineffective [None]

NARRATIVE: CASE EVENT DATE: 20240213
